FAERS Safety Report 9641751 (Version 1)
Quarter: 2013Q4

REPORT INFORMATION
  Report Type: Spontaneous
  Country: NL (occurrence: None)
  Receive Date: 20131021
  Receipt Date: 20131021
  Transmission Date: 20140711
  Serious: Yes (Hospitalization)
  Sender: FDA-Public Use
  Company Number: FK201304639

PATIENT
  Age: 74 Year
  Sex: Female

DRUGS (3)
  1. METHOTREXATE [Suspect]
     Indication: NECROTISING SCLERITIS
     Dosage: 20 MG, 1 IN1 WK, ORAL
     Dates: start: 2010
  2. PREDNISONE [Suspect]
     Indication: NECROTISING SCLERITIS
     Dosage: 1 MG/KG, 1 IN 1 D, ORAL
     Route: 048
  3. ADALIMUMAB [Suspect]
     Indication: NECROTISING SCLERITIS
     Dosage: 40 MG, 1 IN 1 WK, SUBCUTANEOUS
     Route: 058
     Dates: start: 201104

REACTIONS (5)
  - Cholestasis [None]
  - Histoplasmosis disseminated [None]
  - Pleural effusion [None]
  - Haematochezia [None]
  - Large intestinal ulcer [None]
